FAERS Safety Report 8337099-6 (Version None)
Quarter: 2012Q2

REPORT INFORMATION
  Report Type: 
  Country: None (occurrence: None)
  Receive Date: 20120504
  Receipt Date: 20120423
  Transmission Date: 20120825
  Serious: Yes (Hospitalization, Other)
  Sender: FDA-Public Use
  Company Number: PHHY2012AR033222

PATIENT
  Sex: Female

DRUGS (5)
  1. ONBREZ [Suspect]
     Indication: LUNG DISORDER
     Dates: start: 20120401
  2. ENALAPRIL MALEATE [Concomitant]
  3. SPIRONOLACTONE [Concomitant]
  4. AMLODIPINE [Concomitant]
  5. ASPIRIN [Concomitant]

REACTIONS (3)
  - LUNG DISORDER [None]
  - ABDOMINAL MASS [None]
  - MENTAL DISORDER [None]
